FAERS Safety Report 4763794-1 (Version None)
Quarter: 2005Q3

REPORT INFORMATION
  Report Type: 
  Country: None (occurrence: None)
  Receive Date: 20050908
  Receipt Date: 20050504
  Transmission Date: 20060218
  Serious: Yes (Hospitalization)
  Sender: FDA-Public Use
  Company Number: US-BRISTOL-MYERS SQUIBB COMPANY-12956728

PATIENT
  Age: 73 Year
  Sex: Female

DRUGS (15)
  1. CARBOPLATIN [Suspect]
     Indication: NON-SMALL CELL LUNG CANCER
     Dosage: AUC 5
     Route: 042
     Dates: start: 20050421, end: 20050421
  2. GEMZAR [Suspect]
     Indication: NON-SMALL CELL LUNG CANCER
     Dosage: DOSE ILLEGIBLE
     Route: 042
     Dates: start: 20050421, end: 20050421
  3. COUMADIN [Suspect]
     Dates: start: 20050101, end: 20050426
  4. LASIX [Concomitant]
  5. SYNTHROID [Concomitant]
  6. DIGOXIN [Concomitant]
  7. DURAGESIC-100 [Concomitant]
  8. PHENERGAN [Concomitant]
  9. PERCOCET [Concomitant]
  10. ATIVAN [Concomitant]
  11. LEXAPRO [Concomitant]
  12. ADVAIR DISKUS 100/50 [Concomitant]
     Dosage: DOSE: 250/50 ONE INHALATION BID
     Route: 055
  13. ALBUTEROL [Concomitant]
     Dosage: TWO PUFFS EVERY 6 HOURS PRN
     Route: 055
  14. SPIRIVA [Concomitant]
     Route: 055
  15. PREDNISONE TAB [Concomitant]
     Dosage: ON A TAPERING DOSE.

REACTIONS (4)
  - HAEMOPTYSIS [None]
  - HYPOCOAGULABLE STATE [None]
  - PROTHROMBIN TIME RATIO INCREASED [None]
  - TREMOR [None]
